FAERS Safety Report 5528202-1 (Version None)
Quarter: 2007Q4

REPORT INFORMATION
  Report Type: 
  Country: None (occurrence: None)
  Receive Date: 20071128
  Receipt Date: 20071116
  Transmission Date: 20080405
  Serious: Yes (Disabling)
  Sender: FDA-Public Use
  Company Number: NO-PFIZER INC-2007068814

PATIENT
  Sex: Female

DRUGS (2)
  1. CHAMPIX [Suspect]
     Indication: SMOKING CESSATION THERAPY
     Route: 048
     Dates: start: 20070520, end: 20070801
  2. IMOVANE [Concomitant]
     Indication: INSOMNIA
     Route: 048

REACTIONS (3)
  - ANXIETY [None]
  - DIARRHOEA [None]
  - PANIC ATTACK [None]
